FAERS Safety Report 15298085 (Version 2)
Quarter: 2018Q3

REPORT INFORMATION
  Report Type: Report from Study
  Country: BR (occurrence: BR)
  Receive Date: 20180820
  Receipt Date: 20180827
  Transmission Date: 20181010
  Serious: Yes (Hospitalization, Other)
  Sender: FDA-Public Use
  Company Number: PHHY2018BR037052

PATIENT
  Age: 29 Year
  Sex: Female
  Weight: 78 kg

DRUGS (5)
  1. COSENTYX [Suspect]
     Active Substance: SECUKINUMAB
     Indication: URTICARIA
     Dosage: 300 MG, QMO
     Route: 058
     Dates: start: 20180411
  2. COSENTYX [Suspect]
     Active Substance: SECUKINUMAB
     Dosage: 300 MG, UNK (TWO 150 MG SENSOREADY PENS)
     Route: 058
     Dates: start: 20180419, end: 20180519
  3. COSENTYX [Suspect]
     Active Substance: SECUKINUMAB
     Indication: PSORIASIS
     Dosage: 300 MG, QMO
     Route: 058
     Dates: start: 20180202
  4. INFLUENZA VACCINE [Suspect]
     Active Substance: INFLUENZA VIRUS VACCINE
     Indication: PRODUCT USED FOR UNKNOWN INDICATION
     Route: 065
  5. ETANERCEPT [Suspect]
     Active Substance: ETANERCEPT
     Indication: PRODUCT USED FOR UNKNOWN INDICATION
     Route: 065

REACTIONS (13)
  - Psoriasis [Recovered/Resolved]
  - Macule [Recovering/Resolving]
  - Rash [Unknown]
  - General physical health deterioration [Not Recovered/Not Resolved]
  - Wound [Recovering/Resolving]
  - Malaise [Not Recovered/Not Resolved]
  - Gastrointestinal disorder [Unknown]
  - Erythema [Unknown]
  - Diarrhoea haemorrhagic [Recovering/Resolving]
  - Crohn^s disease [Recovering/Resolving]
  - Urticaria [Recovering/Resolving]
  - Otorrhoea [Recovering/Resolving]
  - Hypersensitivity [Not Recovered/Not Resolved]

NARRATIVE: CASE EVENT DATE: 20180413
